FAERS Safety Report 14821187 (Version 1)
Quarter: 2018Q2

REPORT INFORMATION
  Report Type: Spontaneous
  Country: US (occurrence: US)
  Receive Date: 20180417
  Receipt Date: 20180417
  Transmission Date: 20180711
  Serious: Yes (Death)
  Sender: FDA-Public Use
  Company Number: None

PATIENT
  Age: 18 Year
  Sex: Male
  Weight: 56.25 kg

DRUGS (1)
  1. K2 [Suspect]
     Active Substance: JWH-018
     Indication: TOBACCO USER
     Route: 055
     Dates: start: 20120925, end: 20120925

REACTIONS (11)
  - Seizure [None]
  - Aggression [None]
  - Brain injury [None]
  - Completed suicide [None]
  - Paranoia [None]
  - Mood swings [None]
  - Intentional self-injury [None]
  - Psychotic behaviour [None]
  - Palpitations [None]
  - Delusion [None]
  - Renal failure [None]

NARRATIVE: CASE EVENT DATE: 20120925
